FAERS Safety Report 10841305 (Version 1)
Quarter: 2015Q1

REPORT INFORMATION
  Report Type: Spontaneous
  Country: US (occurrence: None)
  Receive Date: 20150218
  Receipt Date: 20150218
  Transmission Date: 20150721
  Serious: Yes (Death)
  Sender: FDA-Public Use
  Company Number: NSR_01869_2015

PATIENT
  Sex: Female

DRUGS (4)
  1. HYDROXYZINE [Suspect]
     Active Substance: HYDROXYZINE\HYDROXYZINE HYDROCHLORIDE
     Indication: PRODUCT USED FOR UNKNOWN INDICATION
     Dosage: (DF)
  2. MORPHINE [Suspect]
     Active Substance: MORPHINE
     Indication: PRODUCT USED FOR UNKNOWN INDICATION
     Dosage: (DF)
  3. METHAMPHETAMINE (NOT SPECIFIED) [Suspect]
     Active Substance: METHAMPHETAMINE
  4. ETHANOL [Suspect]
     Active Substance: ALCOHOL

REACTIONS (3)
  - Respiratory arrest [None]
  - Cardiac arrest [None]
  - Poisoning [None]

NARRATIVE: CASE EVENT DATE: 2013
